FAERS Safety Report 7825027-9 (Version None)
Quarter: 2011Q4

REPORT INFORMATION
  Report Type: 
  Country: None (occurrence: None)
  Receive Date: 20111019
  Receipt Date: 20110426
  Transmission Date: 20120403
  Serious: No
  Sender: FDA-Public Use
  Company Number: US-BRISTOL-MYERS SQUIBB COMPANY-15645559

PATIENT
  Age: 59 Year
  Sex: Male

DRUGS (4)
  1. DIOVAN [Concomitant]
  2. ATENOLOL [Concomitant]
  3. AVALIDE [Suspect]
     Dosage: 1 DF=300/25 MG.
     Dates: start: 20101124, end: 20110125
  4. ADVAIR DISKUS 100/50 [Concomitant]

REACTIONS (1)
  - HYPERTENSION [None]
